FAERS Safety Report 25060154 (Version 1)
Quarter: 2025Q1

REPORT INFORMATION
  Report Type: Spontaneous
  Country: US (occurrence: None)
  Receive Date: 20250310
  Receipt Date: 20250310
  Transmission Date: 20250408
  Serious: Yes (Hospitalization)
  Sender: FDA-CTU
  Company Number: None

PATIENT
  Sex: Female

DRUGS (5)
  1. OPSUMIT [Suspect]
     Active Substance: MACITENTAN
     Indication: Pulmonary arterial hypertension
     Dosage: FREQUENCY : DAILY;?
     Route: 048
     Dates: start: 201805
  2. STERILE DILUENT FOR REMODULIN [Concomitant]
     Active Substance: WATER
  3. ADEMPAS [Concomitant]
     Active Substance: RIOCIGUAT
  4. DEVICE [Concomitant]
     Active Substance: DEVICE
  5. REMODULIN [Concomitant]
     Active Substance: TREPROSTINIL

REACTIONS (2)
  - Dyspnoea exertional [None]
  - Oedema peripheral [None]
